FAERS Safety Report 9653331 (Version 2)
Quarter: 2014Q2

REPORT INFORMATION
  Report Type: Spontaneous
  Country: FR (occurrence: FR)
  Receive Date: 20131029
  Receipt Date: 20140403
  Transmission Date: 20141212
  Serious: Yes (Hospitalization)
  Sender: FDA-Public Use
  Company Number: FR-LUNDBECK-DKLU1094800

PATIENT
  Age: 75 Year
  Sex: Female

DRUGS (3)
  1. URBANYL [Suspect]
     Indication: EPILEPSY
     Route: 048
     Dates: end: 20130930
  2. ALEPSAL [Suspect]
     Indication: EPILEPSY
     Route: 048
     Dates: end: 20130930
  3. HYDROCHLOROTHIAZIDE/VALSARTAN [Concomitant]
     Indication: PRODUCT USED FOR UNKNOWN INDICATION
     Dates: end: 20130930

REACTIONS (1)
  - Hypoventilation [Recovered/Resolved]
